FAERS Safety Report 8663170 (Version 3)
Quarter: 2013Q4

REPORT INFORMATION
  Report Type: Spontaneous
  Country: US (occurrence: US)
  Receive Date: 20120713
  Receipt Date: 20131031
  Transmission Date: 20140711
  Serious: Yes (Hospitalization, Other)
  Sender: FDA-Public Use
  Company Number: US-009507513-2012SP028343

PATIENT
  Age: 14 Year
  Sex: Male
  Weight: 71.2 kg

DRUGS (18)
  1. FELBATOL [Suspect]
     Indication: MYOCLONIC EPILEPSY
     Dosage: UNK
     Route: 048
     Dates: start: 1990
  2. FELBATOL [Suspect]
     Dosage: 900 MG AM AND 600 MG PM
     Route: 048
     Dates: start: 200305
  3. FELBATOL [Suspect]
     Dosage: 900 MG, BID
     Route: 048
     Dates: start: 200310
  4. FELBATOL [Suspect]
     Dosage: 1200 MG, BID
     Route: 048
     Dates: start: 2004
  5. FELBATOL [Suspect]
     Dosage: 1500 MG AM AND 1200 MG PM
     Route: 048
     Dates: start: 200506
  6. FELBATOL [Suspect]
     Dosage: 1800 MG AM AND 1200 MG PM
     Route: 048
     Dates: start: 200605
  7. FELBATOL [Suspect]
     Dosage: 1800 MG AM AND 900 MG PM
     Route: 048
     Dates: start: 2008
  8. BANZEL [Concomitant]
     Indication: PRODUCT USED FOR UNKNOWN INDICATION
     Dosage: 200 MG, QD
  9. ZONEGRAN [Concomitant]
     Dosage: 100 MG, EVERY BED TIME
     Dates: start: 2008
  10. ZONEGRAN [Concomitant]
     Dosage: 200 MG, QPM
  11. VIMPAT [Concomitant]
     Dosage: 200 MG, BID
  12. HYDROXOCOBALAMIN [Concomitant]
     Dosage: UNK
  13. MELATONIN [Concomitant]
     Dosage: UNK
  14. KEPPRA [Concomitant]
     Dosage: 250 MG, BID
     Dates: start: 200605
  15. KEPPRA [Concomitant]
     Dosage: 750 MG AM, 500 MG PM
     Dates: start: 200611
  16. KEPPRA [Concomitant]
     Dosage: 750 MG, BID
     Dates: start: 200706
  17. KEPPRA [Concomitant]
     Dosage: 1500 MG, BID
     Dates: start: 200707
  18. SELENIUM (UNSPECIFIED) [Concomitant]
     Dosage: UNK

REACTIONS (9)
  - Vomiting [Unknown]
  - Gastrooesophageal reflux disease [Not Recovered/Not Resolved]
  - Decreased appetite [Recovered/Resolved]
  - Helicobacter infection [Unknown]
  - Staring [Unknown]
  - Weight decreased [Recovered/Resolved]
  - Pyrexia [Unknown]
  - Constipation [Not Recovered/Not Resolved]
  - Abdominal pain [Not Recovered/Not Resolved]
